FAERS Safety Report 16678250 (Version 1)
Quarter: 2019Q3

REPORT INFORMATION
  Report Type: Spontaneous
  Country: US (occurrence: US)
  Receive Date: 20190807
  Receipt Date: 20190807
  Transmission Date: 20191004
  Serious: Yes (Other)
  Sender: FDA-Public Use
  Company Number: US-PFIZER INC-2019334299

PATIENT
  Age: 77 Year
  Sex: Male
  Weight: 126.98 kg

DRUGS (4)
  1. LYRICA CR [Suspect]
     Active Substance: PREGABALIN
     Indication: ARTHRITIS
     Dosage: 165 MG, DAILY
     Route: 048
     Dates: start: 20190730
  2. METOPROLOL. [Concomitant]
     Active Substance: METOPROLOL
     Indication: HYPERTENSION
     Dosage: 50 MG, 2X/DAY
  3. LOSARTAN. [Concomitant]
     Active Substance: LOSARTAN
     Indication: HYPERTENSION
     Dosage: 100 MG, DAILY
  4. CLONIDINE. [Concomitant]
     Active Substance: CLONIDINE
     Indication: HYPERTENSION
     Dosage: 0.3 MG, DAILY

REACTIONS (5)
  - Product use in unapproved indication [Unknown]
  - Seizure [Unknown]
  - Off label use [Unknown]
  - Disease recurrence [Unknown]
  - Inappropriate schedule of product administration [Unknown]

NARRATIVE: CASE EVENT DATE: 20190730
